FAERS Safety Report 26203908 (Version 1)
Quarter: 2025Q4

REPORT INFORMATION
  Report Type: Spontaneous
  Country: US (occurrence: None)
  Receive Date: 20251224
  Receipt Date: 20251224
  Transmission Date: 20260118
  Serious: Yes (Disabling)
  Sender: FDA-CTU
  Company Number: None

PATIENT
  Age: 55 Year
  Sex: Female
  Weight: 67.5 kg

DRUGS (11)
  1. SOAP [Suspect]
     Active Substance: SOAP
     Indication: Product used for unknown indication
     Dates: start: 20251223, end: 20251224
  2. SCS and a port [Concomitant]
  3. VITAMIN C [Concomitant]
     Active Substance: ASCORBIC ACID
  4. VITAMIN B1 [Concomitant]
     Active Substance: THIAMINE HYDROCHLORIDE
  5. PYRIDOXINE HYDROCHLORIDE [Concomitant]
     Active Substance: PYRIDOXINE HYDROCHLORIDE
  6. IODINE [Concomitant]
     Active Substance: IODINE
  7. POTASSIUM [Concomitant]
     Active Substance: POTASSIUM
  8. MAGNESIUM [Concomitant]
     Active Substance: MAGNESIUM
  9. LYSINE [Concomitant]
     Active Substance: LYSINE
  10. PROBIOTICS NOS [Concomitant]
     Active Substance: PROBIOTICS NOS
  11. Algae oil [Concomitant]

REACTIONS (7)
  - Environmental exposure [None]
  - Nausea [None]
  - Eye irritation [None]
  - Migraine [None]
  - Mucosal irritation [None]
  - Swelling [None]
  - Activities of daily living decreased [None]

NARRATIVE: CASE EVENT DATE: 20251224
